FAERS Safety Report 7305446-X (Version None)
Quarter: 2011Q1

REPORT INFORMATION
  Report Type: 
  Country: None (occurrence: None)
  Receive Date: 20110210
  Receipt Date: 20110202
  Transmission Date: 20110831
  Serious: Yes (Life-Threatening)
  Sender: FDA-Public Use
  Company Number: 026693

PATIENT
  Sex: Male
  Weight: 68 kg

DRUGS (4)
  1. METHOTREXATE [Concomitant]
  2. LEFLUNOMIDE [Concomitant]
  3. INDOMETHACIN [Concomitant]
  4. CIMZIA [Suspect]
     Indication: RHEUMATOID ARTHRITIS
     Dosage: 200 MG 1X/2 WEEKS SUBCUTANEOUS
     Route: 058
     Dates: start: 20100828, end: 20101108

REACTIONS (2)
  - GASTROENTERITIS SALMONELLA [None]
  - CAROTID ARTERY ANEURYSM [None]
